FAERS Safety Report 19406788 (Version 1)
Quarter: 2021Q2

REPORT INFORMATION
  Report Type: Spontaneous
  Country: US (occurrence: US)
  Receive Date: 20210611
  Receipt Date: 20210611
  Transmission Date: 20210717
  Serious: No
  Sender: FDA-Public Use
  Company Number: US-GALDERMA-US2021010447

PATIENT
  Age: 25 Year
  Sex: Female

DRUGS (1)
  1. METROGEL [Suspect]
     Active Substance: METRONIDAZOLE
     Indication: BACTERIAL VAGINOSIS
     Dosage: 1%
     Route: 067

REACTIONS (2)
  - Intentional product use issue [Recovered/Resolved]
  - Product administered at inappropriate site [Recovered/Resolved]
